FAERS Safety Report 9515589 (Version 2)
Quarter: 2013Q4

REPORT INFORMATION
  Report Type: Spontaneous
  Country: US (occurrence: US)
  Receive Date: 20130911
  Receipt Date: 20131003
  Transmission Date: 20140711
  Serious: Yes (Hospitalization, Other)
  Sender: FDA-Public Use
  Company Number: US-ASTELLAS-2013US009450

PATIENT
  Sex: Male

DRUGS (1)
  1. XTANDI [Suspect]
     Indication: PROSTATE CANCER
     Dosage: 160 MG, UID/QD
     Route: 048
     Dates: start: 20130730

REACTIONS (7)
  - Lymphoedema [Unknown]
  - Anaemia [Unknown]
  - Spinal cord compression [Not Recovered/Not Resolved]
  - Metastases to bone [Unknown]
  - Cancer pain [Unknown]
  - Intervertebral disc degeneration [Unknown]
  - Anxiety [Unknown]
